FAERS Safety Report 15540845 (Version 1)
Quarter: 2018Q4

REPORT INFORMATION
  Report Type: Spontaneous
  Country: FR (occurrence: FR)
  Receive Date: 20181023
  Receipt Date: 20181023
  Transmission Date: 20190205
  Serious: Yes (Congenital Anomaly)
  Sender: FDA-Public Use
  Company Number: FR-ZYDUS-029261

PATIENT
  Age: 0 Day
  Sex: Female
  Weight: 2.77 kg

DRUGS (9)
  1. METFORMIN [Suspect]
     Active Substance: METFORMIN HYDROCHLORIDE
     Indication: TYPE 2 DIABETES MELLITUS
     Route: 064
     Dates: start: 20160914, end: 20170214
  2. FLUORESCEIN [Suspect]
     Active Substance: FLUORESCEIN
     Indication: ANGIOGRAM
     Dosage: IN TOTAL
     Route: 064
     Dates: start: 201609, end: 201609
  3. INSULIN PORCINE [Concomitant]
     Active Substance: INSULIN PORK\INSULIN PURIFIED PORK
     Indication: PRODUCT USED FOR UNKNOWN INDICATION
     Route: 065
  4. NICARDIPINE [Suspect]
     Active Substance: NICARDIPINE
     Indication: PRODUCT USED FOR UNKNOWN INDICATION
     Dosage: 20 MG, SCORED TABLET
     Route: 064
     Dates: start: 20170215, end: 20170531
  5. AMLODIPINE [Suspect]
     Active Substance: AMLODIPINE BESYLATE
     Indication: HYPERTENSION
     Route: 064
     Dates: start: 20160914, end: 20170214
  6. LABETALOL [Suspect]
     Active Substance: LABETALOL\LABETALOL HYDROCHLORIDE
     Indication: PRODUCT USED FOR UNKNOWN INDICATION
     Route: 064
     Dates: start: 20170215, end: 20170531
  7. INDOCYANINE GREEN. [Suspect]
     Active Substance: INDOCYANINE GREEN
     Indication: ANGIOGRAM
     Dosage: IN TOTAL
     Route: 064
     Dates: start: 201609, end: 201609
  8. HYDROCHLOROTHIAZIDE/IRBESARTAN [Suspect]
     Active Substance: HYDROCHLOROTHIAZIDE\IRBESARTAN
     Indication: HYPERTENSION
     Dosage: 300 MG / 25 MG FILM-COATED TABLETS
     Route: 064
     Dates: start: 20160914, end: 20170214
  9. DESLORATADINE. [Suspect]
     Active Substance: DESLORATADINE
     Indication: HYPERSENSITIVITY
     Route: 064
     Dates: start: 20160914, end: 20170531

REACTIONS (3)
  - Low birth weight baby [Unknown]
  - Haemangioma congenital [Not Recovered/Not Resolved]
  - Patent ductus arteriosus [Recovered/Resolved]

NARRATIVE: CASE EVENT DATE: 20170531
